FAERS Safety Report 9394854 (Version 1)
Quarter: 2013Q3

REPORT INFORMATION
  Report Type: Spontaneous
  Country: SZ (occurrence: None)
  Receive Date: 20130705
  Receipt Date: 20130705
  Transmission Date: 20140515
  Serious: Yes (Other)
  Sender: FDA-Public Use
  Company Number: 20130325

PATIENT
  Age: 55 Year
  Sex: Male

DRUGS (2)
  1. VENOFER [Suspect]
     Indication: IRON DEFICIENCY ANAEMIA
     Route: 042
     Dates: start: 20130524, end: 20130525
  2. CEFTRIAXONE [Concomitant]

REACTIONS (2)
  - Drug intolerance [None]
  - Drug hypersensitivity [None]
